FAERS Safety Report 24332559 (Version 4)
Quarter: 2025Q4

REPORT INFORMATION
  Report Type: Spontaneous
  Country: AR (occurrence: AR)
  Receive Date: 20240918
  Receipt Date: 20251112
  Transmission Date: 20260118
  Serious: Yes (Hospitalization)
  Sender: ROCHE
  Company Number: AR-002147023-NVSC2024AR183983

PATIENT
  Age: 44 Year
  Sex: Female

DRUGS (4)
  1. XOLAIR [Suspect]
     Active Substance: OMALIZUMAB
     Indication: Asthma
     Dosage: 300 MG (4 WEEKS)
     Route: 058
     Dates: start: 20240710
  2. MONTELUKAST [Concomitant]
     Active Substance: MONTELUKAST
  3. Lidil Cort [Concomitant]
     Indication: Product used for unknown indication
     Route: 065
  4. TRELEGY ELLIPTA [Concomitant]
     Active Substance: FLUTICASONE FUROATE\UMECLIDINIUM BROMIDE\VILANTEROL TRIFENATATE

REACTIONS (5)
  - Addison^s disease [Recovered/Resolved]
  - Hypertension [Recovered/Resolved]
  - Panic attack [Recovered/Resolved]
  - Meniere^s disease [Unknown]
  - Hypotension [Recovered/Resolved]

NARRATIVE: CASE EVENT DATE: 20240907
